FAERS Safety Report 18422538 (Version 1)
Quarter: 2020Q4

REPORT INFORMATION
  Report Type: Report from Study
  Country: US (occurrence: US)
  Receive Date: 20201024
  Receipt Date: 20201024
  Transmission Date: 20210114
  Serious: Yes (Other)
  Sender: FDA-Public Use
  Company Number: US-ROCHE-2627884

PATIENT
  Age: 66 Year
  Sex: Male
  Weight: 98.6 kg

DRUGS (15)
  1. VENETOCLAX. [Suspect]
     Active Substance: VENETOCLAX
     Indication: DIFFUSE LARGE B-CELL LYMPHOMA
     Dosage: DAYS 2-14?LAST DOSE : 16/JUN/2020
     Route: 048
     Dates: start: 20200409
  2. BIOTIN [Concomitant]
     Active Substance: BIOTIN
  3. LENALIDOMIDE [Suspect]
     Active Substance: LENALIDOMIDE
     Indication: DIFFUSE LARGE B-CELL LYMPHOMA
     Dosage: DAYS 1-14?LAST DOSE 16/APR/2020
     Route: 048
     Dates: start: 20200408
  4. COLACE [Concomitant]
     Active Substance: DOCUSATE SODIUM
  5. CYMBALTA [Concomitant]
     Active Substance: DULOXETINE HYDROCHLORIDE
  6. IBRUTINIB [Suspect]
     Active Substance: IBRUTINIB
     Indication: DIFFUSE LARGE B-CELL LYMPHOMA
     Dosage: DAYS 1-14?LAST DOSE 16/APR/2020
     Route: 048
     Dates: start: 20200408
  7. METAMUCIL [Concomitant]
     Active Substance: PLANTAGO SEED
  8. OXYCODONE [Concomitant]
     Active Substance: OXYCODONE
  9. OBINUTUZUMAB. [Suspect]
     Active Substance: OBINUTUZUMAB
     Indication: DIFFUSE LARGE B-CELL LYMPHOMA
     Dosage: DAYS 1-2?LAST DOSE: 13/JUN/2020
     Route: 042
     Dates: start: 20200408
  10. ZOCOR [Concomitant]
     Active Substance: SIMVASTATIN
  11. TRAMADOL. [Concomitant]
     Active Substance: TRAMADOL
  12. NAPROXEN. [Concomitant]
     Active Substance: NAPROXEN
  13. GABAPENTIN. [Concomitant]
     Active Substance: GABAPENTIN
  14. PREDNISONE. [Suspect]
     Active Substance: PREDNISONE
     Indication: DIFFUSE LARGE B-CELL LYMPHOMA
     Dosage: DAYS 1-7?LAST DOSE 09/APR/2020
     Route: 048
     Dates: start: 20200408
  15. MIRALAX [Concomitant]
     Active Substance: POLYETHYLENE GLYCOL 3350

REACTIONS (2)
  - Cardiac failure [Not Recovered/Not Resolved]
  - Atrial flutter [Not Recovered/Not Resolved]

NARRATIVE: CASE EVENT DATE: 20200617
